FAERS Safety Report 9060105 (Version 1)
Quarter: 2013Q1

REPORT INFORMATION
  Report Type: Spontaneous
  Country: US (occurrence: US)
  Receive Date: 20130212
  Receipt Date: 20130212
  Transmission Date: 20140127
  Serious: Yes (Hospitalization)
  Sender: FDA-Public Use
  Company Number: US-BAYER-2013-017802

PATIENT
  Age: 32 Year
  Sex: Female

DRUGS (11)
  1. YAZ [Suspect]
     Indication: ACNE
  2. GIANVI [Suspect]
  3. CLARAVIS [Concomitant]
     Dosage: 40 MG, 1 EVERY DAY
     Route: 048
  4. CLARAVIS [Concomitant]
     Dosage: TWO CAPSULE DAILY
     Route: 048
  5. AMPICILLIN [Concomitant]
     Dosage: 500 MG, 1 BID
     Route: 048
  6. LOCOID [Concomitant]
     Dosage: APPLY TO LIPS AT EVERY NIGHT AT BEDTIME
     Route: 061
  7. VIGAMOX [Concomitant]
     Dosage: INSTILL ONE DROP IN AFFECTED EYES THREE TIMES A DAY
  8. MELOXICAM [Concomitant]
     Dosage: 15 MG, 1 TABLET EVERY DAY
     Route: 048
  9. CYCLOBENZAPRINE [Concomitant]
     Dosage: 5 MG, 1 TID FOR 7 DAYAS
     Route: 048
  10. EPICERAM CREAM [Concomitant]
     Dosage: TWICE DAILY
  11. ACCUTANE [Concomitant]
     Indication: ACNE

REACTIONS (1)
  - Pulmonary embolism [None]
